FAERS Safety Report 17662076 (Version 1)
Quarter: 2020Q2

REPORT INFORMATION
  Report Type: Spontaneous
  Country: US (occurrence: US)
  Receive Date: 20200413
  Receipt Date: 20200413
  Transmission Date: 20200713
  Serious: Yes (Other)
  Sender: FDA-Public Use
  Company Number: US-TEVA-2020-US-1219579

PATIENT
  Sex: Female

DRUGS (1)
  1. TRAMADOL. [Suspect]
     Active Substance: TRAMADOL
     Dosage: PILLS
     Route: 065

REACTIONS (31)
  - Hepatic steatosis [Unknown]
  - Decreased appetite [Unknown]
  - Imprisonment [Unknown]
  - Diarrhoea [Unknown]
  - Abdominal distension [Unknown]
  - Sleep apnoea syndrome [Unknown]
  - Myocardial necrosis marker increased [Unknown]
  - Abdominal pain [Unknown]
  - Heart rate increased [Unknown]
  - Dependence [Unknown]
  - Gait disturbance [Unknown]
  - Headache [Unknown]
  - Depression [Unknown]
  - Hyperhidrosis [Unknown]
  - Impaired work ability [Unknown]
  - Emotional distress [Unknown]
  - Drug interaction [Unknown]
  - Weight decreased [Unknown]
  - Insomnia [Unknown]
  - Blood pressure increased [Unknown]
  - Anxiety [Unknown]
  - Substance use disorder [Unknown]
  - Overdose [Unknown]
  - Renal impairment [Unknown]
  - Near death experience [Unknown]
  - Anal incontinence [Unknown]
  - Pain [Unknown]
  - Dyspepsia [Unknown]
  - Vomiting [Unknown]
  - Ulcer [Unknown]
  - Stress [Unknown]
